FAERS Safety Report 6322178-5 (Version None)
Quarter: 2009Q3

REPORT INFORMATION
  Report Type: 
  Country: None (occurrence: None)
  Receive Date: 20090824
  Receipt Date: 20090126
  Transmission Date: 20100115
  Serious: No
  Sender: FDA-Public Use
  Company Number: US-ABBOTT-09P-163-0500280-00

PATIENT
  Sex: Female
  Weight: 54.026 kg

DRUGS (15)
  1. NIASPAN [Suspect]
     Indication: BLOOD CHOLESTEROL INCREASED
     Route: 048
     Dates: start: 20090122
  2. NIASPAN [Suspect]
     Indication: BLOOD TRIGLYCERIDES INCREASED
  3. AMRIX [Concomitant]
     Indication: FIBROMYALGIA
     Route: 048
  4. AXERT [Concomitant]
     Indication: MIGRAINE
     Route: 048
  5. BENAZEPRIL HYDROCHLORIDE [Concomitant]
     Indication: HYPERTENSION
     Route: 048
  6. INDERAL LA [Concomitant]
     Indication: HYPERTENSION
     Route: 048
  7. LESCOL [Concomitant]
     Indication: BLOOD CHOLESTEROL INCREASED
     Route: 048
  8. LEXAPRO [Concomitant]
     Indication: INSOMNIA
     Route: 048
  9. METFORMIN HCL [Concomitant]
     Indication: GLUCOSE TOLERANCE IMPAIRED
     Route: 048
  10. OMEPRAZOLE [Concomitant]
     Indication: GASTROOESOPHAGEAL REFLUX DISEASE
     Route: 048
  11. PORTIA-21 [Concomitant]
     Indication: CONTRACEPTION
     Dosage: ONCE DAILY
     Route: 048
  12. TOPAMAX [Concomitant]
     Indication: MIGRAINE
     Route: 048
  13. ASPIRIN [Concomitant]
     Indication: PROPHYLAXIS
     Route: 048
     Dates: start: 20081122
  14. ASPIRIN [Concomitant]
     Indication: FLUSHING
  15. BOTOX [Concomitant]
     Indication: MIGRAINE
     Dosage: EVERY TEN WEEKS
     Route: 058

REACTIONS (5)
  - DIZZINESS [None]
  - ERYTHEMA [None]
  - FEELING HOT [None]
  - FLUSHING [None]
  - PRURITUS [None]
